FAERS Safety Report 21358901 (Version 1)
Quarter: 2022Q3

REPORT INFORMATION
  Report Type: Spontaneous
  Country: US (occurrence: None)
  Receive Date: 20220920
  Receipt Date: 20220920
  Transmission Date: 20221027
  Serious: Yes (Hospitalization)
  Sender: FDA-Public Use
  Company Number: None

PATIENT
  Sex: Female

DRUGS (6)
  1. OCREVUS [Suspect]
     Active Substance: OCRELIZUMAB
  2. BUSPIRONE TAB [Concomitant]
  3. DEXTROAMPHET TAB [Concomitant]
  4. GLATIRAMER [Concomitant]
  5. TAGRISSO TAB [Concomitant]
  6. TRIAMCINOLON OIN [Concomitant]

REACTIONS (1)
  - Death [None]
